FAERS Safety Report 10408942 (Version 1)
Quarter: 2014Q3

REPORT INFORMATION
  Report Type: Spontaneous
  Country: US (occurrence: None)
  Receive Date: 20140825
  Receipt Date: 20140825
  Transmission Date: 20150326
  Serious: No
  Sender: FDA-Public Use
  Company Number: None

PATIENT
  Age: 88 Year
  Sex: Male
  Weight: 101.15 kg

DRUGS (1)
  1. XTANDI [Suspect]
     Active Substance: ENZALUTAMIDE
     Dates: start: 20140601, end: 20140731

REACTIONS (3)
  - Therapy cessation [None]
  - International normalised ratio decreased [None]
  - Inhibitory drug interaction [None]

NARRATIVE: CASE EVENT DATE: 20140731
